FAERS Safety Report 7104846-0 (Version None)
Quarter: 2010Q4

REPORT INFORMATION
  Report Type: 
  Country: None (occurrence: None)
  Receive Date: 20101109
  Receipt Date: 20101026
  Transmission Date: 20110411
  Serious: Yes (Hospitalization, Other)
  Sender: FDA-Public Use
  Company Number: 021225

PATIENT
  Sex: Female
  Weight: 43 kg

DRUGS (6)
  1. LEVETIRACETAM [Suspect]
     Indication: OFF LABEL USE
     Dates: start: 20101001
  2. METFORMIN [Concomitant]
  3. PALIPERIDONE PALMITATE [Concomitant]
  4. ACETAMINOPHEN [Concomitant]
  5. LIDOCAINE [Concomitant]
  6. INSULIN INJECTION [Concomitant]

REACTIONS (7)
  - ASTHENIA [None]
  - BALANCE DISORDER [None]
  - DECREASED APPETITE [None]
  - LUNG NEOPLASM [None]
  - MOVEMENT DISORDER [None]
  - OFF LABEL USE [None]
  - WEIGHT DECREASED [None]
